FAERS Safety Report 9343678 (Version 1)
Quarter: 2013Q2

REPORT INFORMATION
  Report Type: Report from Study
  Country: RU (occurrence: RU)
  Receive Date: 20130612
  Receipt Date: 20130612
  Transmission Date: 20140414
  Serious: Yes (Hospitalization, Other)
  Sender: FDA-Public Use
  Company Number: RU-TEVA-334335ISR

PATIENT
  Age: 58 Year
  Sex: Female
  Weight: 88 kg

DRUGS (21)
  1. TL011 [Suspect]
     Indication: DIFFUSE LARGE B-CELL LYMPHOMA
     Dosage: DOUBLE BLIND: TL011 VS. MABTHERA
     Route: 042
     Dates: start: 20120221, end: 20120221
  2. TL011 [Suspect]
     Dosage: DOUBLE BLIND: TL011 VS. MABTHERA
     Route: 042
     Dates: start: 20120313, end: 20120313
  3. TL011 [Suspect]
     Dosage: DOUBLE BLIND: TL011 VS. MABTHERA
     Route: 042
     Dates: start: 20120403, end: 20120403
  4. MABTHERA [Suspect]
     Indication: DIFFUSE LARGE B-CELL LYMPHOMA
     Dosage: DOUBLE BLIND: TL011 VS. MABTHERA
     Route: 042
     Dates: start: 20120221, end: 20120221
  5. MABTHERA [Suspect]
     Dosage: DOUBLE BLIND: TL011 VS. MABTHERA
     Route: 042
     Dates: start: 20110313, end: 20120313
  6. MABTHERA [Suspect]
     Dosage: DOUBLE BLIND: TL011 VS. MABTHERA
     Route: 042
     Dates: start: 20120403, end: 20120403
  7. DOXORUBICIN [Suspect]
     Indication: DIFFUSE LARGE B-CELL LYMPHOMA
     Route: 042
     Dates: start: 20120403, end: 20120403
  8. CYCLOPHOSPHAMIDE [Suspect]
     Indication: DIFFUSE LARGE B-CELL LYMPHOMA
     Route: 042
     Dates: start: 20120403, end: 20120403
  9. VINCRISTINE [Suspect]
     Indication: DIFFUSE LARGE B-CELL LYMPHOMA
     Dosage: 2 MILLIGRAM DAILY;
     Route: 042
     Dates: start: 20120403, end: 20120403
  10. PREDNISOLON [Suspect]
     Indication: DIFFUSE LARGE B-CELL LYMPHOMA
     Dosage: 79 MILLIGRAM DAILY;
     Route: 048
     Dates: start: 20120404, end: 20120404
  11. PREDNISOLON [Suspect]
     Dosage: 79 MILLIGRAM DAILY;
     Route: 048
     Dates: start: 20120403, end: 20120403
  12. PREDNISOLON [Suspect]
     Dosage: 79 MILLIGRAM DAILY;
     Route: 048
     Dates: start: 20120314, end: 20120317
  13. ENALAPRIL [Concomitant]
     Indication: HYPERTENSION
     Dosage: 10 MILLIGRAM DAILY;
     Route: 048
     Dates: start: 20120215
  14. AMLODIPIN [Concomitant]
     Indication: HYPERTENSION
     Dosage: 10 MILLIGRAM DAILY;
     Route: 048
     Dates: start: 20120215
  15. RABEPRAZOLE [Concomitant]
     Indication: PROPHYLAXIS
     Dosage: 20 MILLIGRAM DAILY;
     Route: 048
     Dates: start: 20120313, end: 20120317
  16. RABEPRAZOLE [Concomitant]
     Dosage: 20 MILLIGRAM DAILY;
     Route: 048
     Dates: start: 20120403, end: 20120407
  17. ALGELDRATE W/MAGNESIUM HYDROXIDE [Concomitant]
     Indication: PROPHYLAXIS
     Dosage: 15 ML DAILY;
     Route: 048
     Dates: start: 20120313, end: 20120317
  18. ALGELDRATE W/MAGNESIUM HYDROXIDE [Concomitant]
     Dosage: 15 ML DAILY;
     Route: 048
     Dates: start: 20120403, end: 20120407
  19. PARACETAMOL [Concomitant]
     Indication: PROPHYLAXIS
     Dosage: 1 GRAM DAILY;
     Route: 048
     Dates: start: 20120403, end: 20120403
  20. DIFENHYDRAMIN [Concomitant]
     Indication: PROPHYLAXIS
     Dosage: 50 MILLIGRAM DAILY;
     Route: 042
     Dates: start: 20120403, end: 20120403
  21. ONDANSETRON [Concomitant]
     Indication: PROPHYLAXIS
     Dosage: 8 MILLIGRAM DAILY;
     Route: 042
     Dates: start: 20120403, end: 20120403

REACTIONS (2)
  - Febrile neutropenia [Recovered/Resolved]
  - Stomatitis [Recovered/Resolved]
